FAERS Safety Report 18002433 (Version 4)
Quarter: 2020Q3

REPORT INFORMATION
  Report Type: Spontaneous
  Country: DE (occurrence: DE)
  Receive Date: 20200709
  Receipt Date: 20200910
  Transmission Date: 20201103
  Serious: No
  Sender: FDA-Public Use
  Company Number: DE-ASCEND THERAPEUTICS US, LLC-2087187

PATIENT
  Age: 25 Year
  Sex: Female
  Weight: 70 kg

DRUGS (5)
  1. ESTROGEL [Suspect]
     Active Substance: ESTRADIOL
  2. GYNOKADIN DOSIERGEL (ESTRADIOL HEMIHYDRATE) (GEL), UNKNOWN, UNKNOWN [Suspect]
     Active Substance: ESTRADIOL HEMIHYDRATE
     Route: 065
     Dates: start: 201912
  3. GYNOKADIN DOSIERGEL (ESTRADIOL HEMIHYDRATE) (GEL), UNKNOWN, UNKNOWN [Suspect]
     Active Substance: ESTRADIOL HEMIHYDRATE
     Route: 065
  4. ESTROGEL [Suspect]
     Active Substance: ESTRADIOL
     Indication: MENOPAUSAL SYMPTOMS
     Route: 065
     Dates: start: 201912
  5. FAMENITA (PROGESTERONE), UNKNOWN,  UNKNOWN?INDICATION FOR USE: PREVENT [Suspect]
     Active Substance: PROGESTERONE
     Dates: start: 201912

REACTIONS (10)
  - Ovarian cyst [Recovered/Resolved]
  - Fatigue [Unknown]
  - Dizziness [Unknown]
  - Off label use [Unknown]
  - Ovarian haemorrhage [Unknown]
  - Intentional product misuse [Unknown]
  - Sleep disorder [Unknown]
  - Depressed mood [Unknown]
  - Abdominal pain lower [Unknown]
  - Wrong technique in product usage process [Unknown]
